FAERS Safety Report 14849537 (Version 3)
Quarter: 2018Q2

REPORT INFORMATION
  Report Type: Report from Study
  Country: ES (occurrence: ES)
  Receive Date: 20180504
  Receipt Date: 20180605
  Transmission Date: 20180711
  Serious: Yes (Hospitalization)
  Sender: FDA-Public Use
  Company Number: ES-PFIZER INC-2018185250

PATIENT
  Age: 3 Year
  Sex: Female

DRUGS (11)
  1. FOLINIC ACID [Concomitant]
     Active Substance: LEUCOVORIN
     Indication: PROPHYLAXIS
     Route: 042
     Dates: start: 20171005, end: 20171008
  2. FILGRASTIM [Concomitant]
     Active Substance: FILGRASTIM
     Indication: NEUTROPENIA
     Dosage: UNK UNK, DAILY
     Route: 058
     Dates: start: 20171009, end: 20171020
  3. ONCASPAR [Suspect]
     Active Substance: PEGASPARGASE
     Indication: ACUTE LYMPHOCYTIC LEUKAEMIA
     Dosage: 658.3 IU, 1X/DAY
     Route: 030
     Dates: start: 20171008, end: 20171008
  4. ZOVIRAX [Concomitant]
     Active Substance: ACYCLOVIR
     Indication: OPPORTUNISTIC INFECTION PROPHYLAXIS
     Dosage: 2 ML, EVERY 8 HOURS
     Route: 048
     Dates: start: 20170627
  5. MESNA. [Concomitant]
     Active Substance: MESNA
     Indication: PROPHYLAXIS
     Dosage: 138.3 MG, EVERY 12 HOURS
     Route: 042
     Dates: start: 20171004, end: 20171006
  6. VINCRISTINE SULFATE. [Suspect]
     Active Substance: VINCRISTINE SULFATE
     Indication: ACUTE LYMPHOCYTIC LEUKAEMIA
     Dosage: 1 MG, 1X/DAY
     Route: 042
     Dates: start: 20171002, end: 20171007
  7. METHOTREXATE SODIUM. [Suspect]
     Active Substance: METHOTREXATE SODIUM
     Indication: ACUTE LYMPHOCYTIC LEUKAEMIA
     Dosage: 3291 MG, 1X/DAY
     Route: 042
     Dates: start: 20171002, end: 20171003
  8. CYCLOPHOSPHAMIDE. [Suspect]
     Active Substance: CYCLOPHOSPHAMIDE
     Indication: ACUTE LYMPHOCYTIC LEUKAEMIA
     Dosage: 131.7 MG, EVERY 12 HOURS
     Route: 042
     Dates: start: 20171004, end: 20171006
  9. CYTARABINE. [Suspect]
     Active Substance: CYTARABINE
     Indication: ACUTE LYMPHOCYTIC LEUKAEMIA
     Dosage: 1316.6 MG, EVERY 12 HOURS
     Route: 042
     Dates: start: 20171006, end: 20171007
  10. DEXAMETHASONE. [Suspect]
     Active Substance: DEXAMETHASONE
     Indication: ACUTE LYMPHOCYTIC LEUKAEMIA
     Dosage: 6.6 MG, EVERY 12 HOURS
     Route: 042
     Dates: start: 20171002, end: 20171006
  11. SEPTRIN PAEDIATRIC [Concomitant]
     Active Substance: SULFAMETHOXAZOLE\TRIMETHOPRIM
     Indication: OPPORTUNISTIC INFECTION PROPHYLAXIS
     Dosage: 5 ML, EVERY 12 HOURS
     Route: 048
     Dates: start: 20170627

REACTIONS (2)
  - Pancytopenia [Recovered/Resolved]
  - Respiratory tract infection [Recovered/Resolved]

NARRATIVE: CASE EVENT DATE: 20171012
